FAERS Safety Report 24731707 (Version 1)
Quarter: 2024Q4

REPORT INFORMATION
  Report Type: Spontaneous
  Country: BG (occurrence: BG)
  Receive Date: 20241213
  Receipt Date: 20241213
  Transmission Date: 20250114
  Serious: Yes (Other)
  Sender: BRISTOL-MYERS SQUIBB COMPANY
  Company Number: BG-BRISTOL-MYERS SQUIBB COMPANY-2024-188702

PATIENT
  Age: 64 Year
  Sex: Female
  Weight: 50 kg

DRUGS (9)
  1. OPDIVO [Suspect]
     Active Substance: NIVOLUMAB
     Indication: Non-small cell lung cancer
     Route: 042
     Dates: start: 20221213
  2. OPDIVO [Suspect]
     Active Substance: NIVOLUMAB
     Dosage: 24-JAN-2023
     Route: 042
     Dates: start: 20230124
  3. OPDIVO [Suspect]
     Active Substance: NIVOLUMAB
     Route: 042
     Dates: start: 20241128
  4. YERVOY [Suspect]
     Active Substance: IPILIMUMAB
     Indication: Non-small cell lung cancer
     Dosage: ACTUAL DOSE: 50MG
     Route: 042
     Dates: start: 20221213
  5. YERVOY [Suspect]
     Active Substance: IPILIMUMAB
     Dosage: MAINTENANCE THERAPY
     Route: 042
     Dates: start: 20230124
  6. YERVOY [Suspect]
     Active Substance: IPILIMUMAB
     Route: 042
     Dates: start: 20241128
  7. CISPLATIN [Concomitant]
     Active Substance: CISPLATIN
     Indication: Non-small cell lung cancer
     Dosage: 1ST DAY 1ST COURSE: 116.25MG?2ND COURSE 1ST DAY: 80MG
     Route: 042
     Dates: start: 20221213
  8. GEMCITABINE [Concomitant]
     Active Substance: GEMCITABINE
     Indication: Non-small cell lung cancer
     Dosage: 1ST COURSE 1ST DAY: 1555MG?2ND COURSE 1ST DAY: 1300MG?2ND COURSE 8TH DAY: 1300MG
     Route: 042
     Dates: start: 20221213
  9. FILGRASTIM [Concomitant]
     Active Substance: FILGRASTIM
     Indication: Product used for unknown indication
     Dosage: 1ST COURSE 8TH  DAY

REACTIONS (2)
  - Pneumonia [Recovered/Resolved]
  - Keratitis [Recovered/Resolved]
